FAERS Safety Report 11438014 (Version 7)
Quarter: 2015Q4

REPORT INFORMATION
  Report Type: Report from Study
  Country: FR (occurrence: FR)
  Receive Date: 20150831
  Receipt Date: 20151211
  Transmission Date: 20160304
  Serious: Yes (Death, Hospitalization)
  Sender: FDA-Public Use
  Company Number: FR-B.I. PHARMACEUTICALS,INC./RIDGEFIELD-2015-BI-46267BI

PATIENT
  Age: 5 Year
  Sex: Male
  Weight: 17.5 kg

DRUGS (2)
  1. AFATINIB [Suspect]
     Active Substance: AFATINIB
     Indication: NEUROECTODERMAL NEOPLASM
     Dosage: 14 MG
     Route: 048
     Dates: start: 20150709, end: 20150824
  2. AFATINIB [Suspect]
     Active Substance: AFATINIB
     Indication: RHABDOMYOSARCOMA

REACTIONS (4)
  - Vomiting [Fatal]
  - Abdominal pain [Recovered/Resolved]
  - Vomiting [Recovered/Resolved]
  - Headache [Fatal]

NARRATIVE: CASE EVENT DATE: 20150818
